FAERS Safety Report 16688640 (Version 8)
Quarter: 2020Q4

REPORT INFORMATION
  Report Type: Report from Study
  Country: US (occurrence: US)
  Receive Date: 20190809
  Receipt Date: 20201214
  Transmission Date: 20210113
  Serious: Yes (Hospitalization, Other)
  Sender: FDA-Public Use
  Company Number: US-SHIRE-US201920361

PATIENT
  Sex: Female

DRUGS (3)
  1. HUMAN NORMAL IMMUNOGLOBULIN; LIQUID 20 [Suspect]
     Active Substance: HUMAN IMMUNOGLOBULIN G
     Indication: IMMUNODEFICIENCY COMMON VARIABLE
     Dosage: 1 GRAM
     Route: 065
  2. HUMAN NORMAL IMMUNOGLOBULIN; LIQUID 20 [Suspect]
     Active Substance: HUMAN IMMUNOGLOBULIN G
     Dosage: 2 GRAM
     Route: 065
  3. HUMAN NORMAL IMMUNOGLOBULIN; LIQUID 20 [Suspect]
     Active Substance: HUMAN IMMUNOGLOBULIN G
     Dosage: 8 GRAM
     Route: 065

REACTIONS (23)
  - Laryngitis [Unknown]
  - Rash [Recovered/Resolved]
  - Skin sensitisation [Unknown]
  - Acarodermatitis [Unknown]
  - Impaired gastric emptying [Unknown]
  - Gallbladder disorder [Unknown]
  - Allergic reaction to excipient [Unknown]
  - Parainfluenzae virus infection [Unknown]
  - Fatigue [Unknown]
  - Infusion site pain [Unknown]
  - Injury associated with device [Unknown]
  - Umbilical hernia [Unknown]
  - Appendix disorder [Unknown]
  - Pruritus [Not Recovered/Not Resolved]
  - Accidental exposure to product [Unknown]
  - Infusion site bruising [Unknown]
  - Pulmonary mass [Unknown]
  - Inappropriate schedule of product administration [Unknown]
  - Skin cancer [Unknown]
  - Sepsis [Unknown]
  - Infusion site swelling [Unknown]
  - Weight decreased [Unknown]
  - Subcutaneous drug absorption impaired [Unknown]

NARRATIVE: CASE EVENT DATE: 2019
